FAERS Safety Report 8309535-2 (Version None)
Quarter: 2012Q2

REPORT INFORMATION
  Report Type: 
  Country: None (occurrence: None)
  Receive Date: 20120425
  Receipt Date: 20120419
  Transmission Date: 20120825
  Serious: No
  Sender: FDA-Public Use
  Company Number: US-PFIZER INC-2012100037

PATIENT
  Sex: Male
  Weight: 90.703 kg

DRUGS (9)
  1. OXYCODONE [Concomitant]
     Indication: BREAKTHROUGH PAIN
     Dosage: UNK
  2. PRAVASTATIN [Concomitant]
     Indication: BLOOD CHOLESTEROL ABNORMAL
     Dosage: UNK
  3. MORPHINE [Concomitant]
     Indication: PELVIC PAIN
     Dosage: 60 MG, EVERY 12 HOURS
  4. TAMSULOSIN HYDROCHLORIDE [Concomitant]
     Dosage: UNK, DAILY
  5. MULTI-VITAMINS [Concomitant]
     Dosage: UNK
  6. SUTENT [Suspect]
     Indication: METASTATIC RENAL CELL CARCINOMA
     Dosage: 50 MG, UNK
     Dates: start: 20111121, end: 20111218
  7. SUTENT [Suspect]
     Dosage: 37.5 MG (25 MG + 12.5 MG), UNK
     Dates: start: 20120102
  8. NEURONTIN [Concomitant]
     Dosage: UNK, FOUR TIMES DAILY
  9. METOPROLOL [Concomitant]
     Indication: CARDIAC DISORDER
     Dosage: UNK

REACTIONS (3)
  - STOMATITIS [None]
  - PRURITUS [None]
  - PARAESTHESIA [None]
